FAERS Safety Report 7976790-8 (Version None)
Quarter: 2011Q4

REPORT INFORMATION
  Report Type: 
  Country: None (occurrence: None)
  Receive Date: 20111213
  Receipt Date: 20111104
  Transmission Date: 20120403
  Serious: No
  Sender: FDA-Public Use
  Company Number: US-AMGEN-USASP2011040172

PATIENT
  Age: 54 Year
  Sex: Female
  Weight: 68.027 kg

DRUGS (8)
  1. ENBREL [Suspect]
     Indication: RHEUMATOID ARTHRITIS
     Dosage: 50 MG, QWK
     Route: 058
     Dates: start: 20110617
  2. CALCIUM [Concomitant]
     Dosage: UNK
     Route: 048
  3. PREDNISONE TAB [Concomitant]
     Dosage: 1 MG, UNK
     Route: 048
  4. METHOTREXATE [Concomitant]
     Dosage: 2.5 MG, UNK
     Route: 048
  5. FOLIC ACID [Concomitant]
     Dosage: 1 MG, UNK
     Route: 048
  6. SIMVASTATIN [Concomitant]
     Dosage: 40 MG, UNK
     Route: 048
  7. VITAMIN D [Concomitant]
     Dosage: UNK
     Route: 048
  8. FISH OIL [Concomitant]
     Dosage: UNK
     Route: 048

REACTIONS (1)
  - DRUG INEFFECTIVE [None]
